FAERS Safety Report 7376376-2 (Version None)
Quarter: 2011Q1

REPORT INFORMATION
  Report Type: 
  Country: None (occurrence: None)
  Receive Date: 20110325
  Receipt Date: 20110228
  Transmission Date: 20110831
  Serious: Yes (Hospitalization, Other)
  Sender: FDA-Public Use
  Company Number: US-BAYER-201028830NA

PATIENT
  Sex: Female
  Weight: 90.703 kg

DRUGS (4)
  1. YASMIN [Suspect]
     Indication: ORAL CONTRACEPTION
     Dosage: UNK
     Route: 048
     Dates: start: 20080601, end: 20080701
  2. LITHIUM [Concomitant]
     Dosage: 600 MG, UNK
     Route: 048
  3. KEPPRA [Concomitant]
     Indication: CONVULSION
  4. NEXIUM [Concomitant]
     Route: 048

REACTIONS (3)
  - INTRACRANIAL VENOUS SINUS THROMBOSIS [None]
  - CEREBROVASCULAR ACCIDENT [None]
  - VENOUS THROMBOSIS [None]
